FAERS Safety Report 7233423-6 (Version None)
Quarter: 2011Q1

REPORT INFORMATION
  Report Type: 
  Country: None (occurrence: None)
  Receive Date: 20110119
  Receipt Date: 20110114
  Transmission Date: 20110831
  Serious: Yes (Death, Hospitalization)
  Sender: FDA-Public Use
  Company Number: JP-NOVOPROD-319105

PATIENT
  Age: 75 Year
  Sex: Female

DRUGS (13)
  1. ITOROL [Concomitant]
     Dosage: 40 MG, QD
     Route: 048
     Dates: end: 20101103
  2. GRAMALIL [Concomitant]
     Dosage: 75 MG, QD
     Route: 048
     Dates: end: 20101103
  3. VICTOZA [Suspect]
     Dosage: 0.6 MG, QD
     Route: 058
     Dates: start: 20101029, end: 20101103
  4. GASMOTIN [Concomitant]
     Dosage: 15 MG, QD
     Route: 048
     Dates: end: 20101103
  5. MIYARISAN BM [Concomitant]
     Dosage: 3 MG, QD
     Route: 048
     Dates: end: 20101103
  6. VICTOZA [Suspect]
     Indication: TYPE 2 DIABETES MELLITUS
     Dosage: 0.3 MG, QD
     Route: 058
     Dates: start: 20101023
  7. CLARITHROMYCIN [Concomitant]
     Dosage: 20 MG, QD
     Route: 048
     Dates: end: 20101103
  8. ARICEPT [Concomitant]
     Dosage: 5 MG, QD
     Route: 048
     Dates: start: 20101030, end: 20101103
  9. CIBENOL [Concomitant]
     Dosage: 150 MG, QD
     Route: 048
     Dates: end: 20101103
  10. PLAVIX [Concomitant]
     Dosage: 75 MG, QD
     Route: 048
     Dates: end: 20101103
  11. SENNOSIDE                          /00571901/ [Concomitant]
     Dosage: 12 MG, QD
     Route: 048
     Dates: end: 20101103
  12. SIGMART [Concomitant]
     Dosage: 15 MG, QD
     Route: 048
     Dates: end: 20101103
  13. GLIMICRON [Concomitant]
     Dosage: 20 MG, QD
     Route: 048
     Dates: end: 20101103

REACTIONS (1)
  - MYOCARDIAL INFARCTION [None]
